FAERS Safety Report 11013703 (Version 2)
Quarter: 2015Q2

REPORT INFORMATION
  Report Type: Spontaneous
  Country: US (occurrence: US)
  Receive Date: 20150411
  Receipt Date: 20150526
  Transmission Date: 20150821
  Serious: No
  Sender: FDA-Public Use
  Company Number: US-JNJFOC-20120506795

PATIENT

DRUGS (6)
  1. OXYBUTYNIN ER [Suspect]
     Active Substance: OXYBUTYNIN
     Indication: DYSURIA
     Route: 065
  2. OXYBUTYNIN ER [Suspect]
     Active Substance: OXYBUTYNIN
     Indication: BLADDER PAIN
     Route: 065
  3. OXYBUTYNIN ER [Suspect]
     Active Substance: OXYBUTYNIN
     Indication: MICTURITION URGENCY
     Route: 065
  4. OXYBUTYNIN ER [Suspect]
     Active Substance: OXYBUTYNIN
     Indication: HAEMATURIA
     Route: 065
  5. OXYBUTYNIN ER [Suspect]
     Active Substance: OXYBUTYNIN
     Indication: POLLAKIURIA
     Route: 065
  6. BACILLUS CALMETTE-GUERIN [Suspect]
     Active Substance: BCG VACCINE
     Indication: TRANSITIONAL CELL CARCINOMA
     Route: 043

REACTIONS (6)
  - Drug ineffective [Recovered/Resolved]
  - Vision blurred [Unknown]
  - Constipation [Unknown]
  - Pyrexia [Unknown]
  - Influenza like illness [Unknown]
  - Dry mouth [Unknown]
